FAERS Safety Report 4482203-3 (Version None)
Quarter: 2004Q4

REPORT INFORMATION
  Report Type: 
  Country: None (occurrence: None)
  Receive Date: 20041020
  Receipt Date: 20041005
  Transmission Date: 20050328
  Serious: Yes (Other)
  Sender: FDA-Public Use
  Company Number: 2004-DE-05153DE

PATIENT
  Age: 78 Year
  Sex: Male

DRUGS (1)
  1. ALNA (TAMSULOSIN) (KAR)  (TAMSULOSIN HYDROCHLORIDE) [Suspect]
     Dosage: 1 ANZ (0.4 MG) PO
     Route: 048

REACTIONS (1)
  - LOSS OF CONSCIOUSNESS [None]
